FAERS Safety Report 4334120-7 (Version None)
Quarter: 2004Q2

REPORT INFORMATION
  Report Type: 
  Country: None (occurrence: None)
  Receive Date: 20040402
  Receipt Date: 20040317
  Transmission Date: 20050107
  Serious: Yes (Hospitalization)
  Sender: FDA-Public Use
  Company Number: 2004-DE-01337GD

PATIENT
  Age: 23 Year
  Sex: Female

DRUGS (2)
  1. CODEINE PHOSPHATE AND ACETAMINOPHEN [Suspect]
     Indication: HEADACHE
     Dosage: SPORADICALLY FOR SOME YEARS
  2. PYRITINOL (PYRITINOL) [Suspect]
     Indication: MEMORY IMPAIRMENT
     Dosage: 600 MG

REACTIONS (1)
  - HEPATITIS CHOLESTATIC [None]
